FAERS Safety Report 19359572 (Version 1)
Quarter: 2021Q2

REPORT INFORMATION
  Report Type: Other
  Country: CA (occurrence: CA)
  Receive Date: 20210601
  Receipt Date: 20210601
  Transmission Date: 20210717
  Serious: Yes (Hospitalization, Other)
  Sender: FDA-Public Use
  Company Number: CA-APOTEX-2021AP012702

PATIENT
  Age: 59 Year
  Sex: Female
  Weight: 56 kg

DRUGS (1)
  1. APO?LITHIUM CARBONATE [Suspect]
     Active Substance: LITHIUM CARBONATE
     Indication: BIPOLAR DISORDER
     Dosage: 600 MILLIGRAM, BID
     Route: 048

REACTIONS (5)
  - Hypernatraemia [Recovered/Resolved]
  - Polydipsia [Recovered/Resolved]
  - Tremor [Recovered/Resolved]
  - Toxicity to various agents [Recovered/Resolved]
  - Polyuria [Recovered/Resolved]
